FAERS Safety Report 17685296 (Version 1)
Quarter: 2020Q2

REPORT INFORMATION
  Report Type: Spontaneous
  Country: PT (occurrence: PT)
  Receive Date: 20200420
  Receipt Date: 20200420
  Transmission Date: 20200714
  Serious: Yes (Hospitalization)
  Sender: FDA-Public Use
  Company Number: PT-PURACAP PHARMACEUTICAL LLC-2020EPC00132

PATIENT
  Age: 49 Year
  Sex: Male

DRUGS (3)
  1. PREDNISOLONE. [Concomitant]
     Active Substance: PREDNISOLONE
     Dosage: 5 MG
     Route: 065
  2. ALLOPURINOL. [Suspect]
     Active Substance: ALLOPURINOL
     Indication: OLIGOARTHRITIS
     Dosage: 100 MG
     Route: 065
  3. COLCHICINE. [Concomitant]
     Active Substance: COLCHICINE
     Dosage: 1 MG
     Route: 065

REACTIONS (4)
  - Drug reaction with eosinophilia and systemic symptoms [Recovered/Resolved]
  - Atrioventricular block [Recovered/Resolved]
  - Myocardial necrosis [Recovered/Resolved]
  - Atrial enlargement [Recovered/Resolved]
